FAERS Safety Report 13378024 (Version 1)
Quarter: 2017Q1

REPORT INFORMATION
  Report Type: Spontaneous
  Country: SE (occurrence: SE)
  Receive Date: 20170328
  Receipt Date: 20170328
  Transmission Date: 20170429
  Serious: Yes (Hospitalization)
  Sender: FDA-Public Use
  Company Number: SE-PFIZER INC-2017128884

PATIENT
  Age: 73 Year
  Sex: Male

DRUGS (5)
  1. FURIX [Concomitant]
     Active Substance: FUROSEMIDE
  2. ZYVOXID [Suspect]
     Active Substance: LINEZOLID
     Indication: INFECTION
     Dosage: UNK
     Route: 042
     Dates: start: 20150227, end: 20150303
  3. VANCOMYCIN HCL [Suspect]
     Active Substance: VANCOMYCIN HYDROCHLORIDE
     Indication: INFECTION
     Dosage: UNK
     Route: 042
     Dates: start: 20150216, end: 20150303
  4. FRAGMIN [Concomitant]
     Active Substance: DALTEPARIN SODIUM
  5. CEFOTAXIM VILLERTON [Concomitant]

REACTIONS (2)
  - Skin reaction [Unknown]
  - Erythema [Unknown]

NARRATIVE: CASE EVENT DATE: 20150302
